FAERS Safety Report 15987098 (Version 1)
Quarter: 2019Q1

REPORT INFORMATION
  Report Type: Spontaneous
  Country: US (occurrence: US)
  Receive Date: 20190220
  Receipt Date: 20190220
  Transmission Date: 20190418
  Serious: No
  Sender: FDA-Public Use
  Company Number: US-ALLERGAN-1728708US

PATIENT
  Age: 23 Year
  Sex: Female

DRUGS (1)
  1. BOTOX [Suspect]
     Active Substance: ONABOTULINUMTOXINA
     Indication: ACCIDENTAL EXPOSURE TO PRODUCT
     Dosage: UNK UNK, SINGLE
     Route: 047
     Dates: start: 20170705, end: 20170705

REACTIONS (1)
  - Accidental exposure to product [Unknown]
